FAERS Safety Report 12711537 (Version 1)
Quarter: 2016Q3

REPORT INFORMATION
  Report Type: Spontaneous
  Country: IT (occurrence: IT)
  Receive Date: 20160902
  Receipt Date: 20160902
  Transmission Date: 20161109
  Serious: Yes (Hospitalization)
  Sender: FDA-Public Use
  Company Number: IT-TEVA-688052ACC

PATIENT
  Age: 38 Year
  Sex: Female

DRUGS (2)
  1. CARBOPLATINO TEVA - 10 MG/ML - TEVA PHARMA B.V. [Suspect]
     Active Substance: CARBOPLATIN
     Indication: CERVIX CARCINOMA
     Dates: start: 20160727
  2. PACLITAXEL KABI - 6 MG/ML CONCENTRATO PER SOLUZIONE PER INFUSIONE [Suspect]
     Active Substance: PACLITAXEL
     Indication: CERVIX CARCINOMA
     Dates: start: 20160725

REACTIONS (2)
  - Hypercreatininaemia [Recovering/Resolving]
  - Bone marrow toxicity [Recovering/Resolving]

NARRATIVE: CASE EVENT DATE: 20160804
